FAERS Safety Report 21483724 (Version 1)
Quarter: 2022Q4

REPORT INFORMATION
  Report Type: Report from Study
  Country: AU (occurrence: AU)
  Receive Date: 20221020
  Receipt Date: 20221020
  Transmission Date: 20230113
  Serious: Yes (Death, Other)
  Sender: FDA-Public Use
  Company Number: AU-BAYER-2022A027138

PATIENT
  Sex: Female

DRUGS (1)
  1. EYLEA [Suspect]
     Active Substance: AFLIBERCEPT
     Indication: Neovascular age-related macular degeneration
     Dosage: UNK; UNKNOWN NUMBER OF INJECTIONS, EVERY 9 WEEKS, OS; SOL FOR INJ; STRENGTH: 40MG/ML
     Route: 031
     Dates: end: 20220907

REACTIONS (3)
  - Death [Fatal]
  - Visual impairment [Not Recovered/Not Resolved]
  - Injection site discomfort [Not Recovered/Not Resolved]

NARRATIVE: CASE EVENT DATE: 20220907
